FAERS Safety Report 17202253 (Version 4)
Quarter: 2023Q1

REPORT INFORMATION
  Report Type: Report from Study
  Country: US (occurrence: US)
  Receive Date: 20191226
  Receipt Date: 20230217
  Transmission Date: 20230417
  Serious: Yes (Other)
  Sender: FDA-Public Use
  Company Number: US-JNJFOC-20191239681

PATIENT
  Age: 44 Year
  Sex: Female
  Weight: 65.8 kg

DRUGS (9)
  1. ELMIRON [Suspect]
     Active Substance: PENTOSAN POLYSULFATE SODIUM
     Indication: Cystitis interstitial
     Dosage: MEAN DAILY DOSE 400MG
     Route: 065
  2. BACLOFEN [Concomitant]
     Active Substance: BACLOFEN
  3. URISPAS [Concomitant]
     Active Substance: FLAVOXATE HYDROCHLORIDE
  4. GABAPENTIN [Concomitant]
     Active Substance: GABAPENTIN
  5. HYDROXYZINE [Concomitant]
     Active Substance: HYDROXYZINE HYDROCHLORIDE
  6. MACROBID [Concomitant]
     Active Substance: NITROFURANTOIN\NITROFURANTOIN MONOHYDRATE
  7. PYRIDIUM [Concomitant]
     Active Substance: PHENAZOPYRIDINE
  8. BUPIVACAINE [Concomitant]
     Active Substance: BUPIVACAINE
  9. HEPARIN [Concomitant]
     Active Substance: HEPARIN SODIUM

REACTIONS (1)
  - Maculopathy [Not Recovered/Not Resolved]
